FAERS Safety Report 17065426 (Version 1)
Quarter: 2019Q4

REPORT INFORMATION
  Report Type: Spontaneous
  Country: US (occurrence: US)
  Receive Date: 20191122
  Receipt Date: 20191122
  Transmission Date: 20200122
  Serious: Yes (Other)
  Sender: FDA-Public Use
  Company Number: US-GLAXOSMITHKLINE-US2019AMR207063

PATIENT

DRUGS (1)
  1. BENLYSTA [Suspect]
     Active Substance: BELIMUMAB
     Indication: SYSTEMIC LUPUS ERYTHEMATOSUS
     Dosage: UNK
     Route: 065

REACTIONS (8)
  - Dry eye [Unknown]
  - Immunosuppression [Unknown]
  - Herpes zoster [Unknown]
  - Amnesia [Unknown]
  - Pain [Unknown]
  - Discomfort [Unknown]
  - Condition aggravated [Unknown]
  - Herpes zoster infection neurological [Unknown]
